FAERS Safety Report 12620989 (Version 2)
Quarter: 2016Q3

REPORT INFORMATION
  Report Type: Report from Study
  Country: MX (occurrence: MX)
  Receive Date: 20160804
  Receipt Date: 20160810
  Transmission Date: 20161109
  Serious: Yes (Hospitalization, Other)
  Sender: FDA-Public Use
  Company Number: PHHY2016MX005860

PATIENT
  Sex: Male

DRUGS (8)
  1. ONBREZ BREEZHALER [Suspect]
     Active Substance: INDACATEROL
     Indication: BRONCHIAL DISORDER
     Dosage: 150 UG, QD
     Route: 065
     Dates: end: 20160131
  2. ONBREZ BREEZHALER [Suspect]
     Active Substance: INDACATEROL
     Dosage: 150 UG, QD
     Route: 065
  3. MIFLONIDE [Suspect]
     Active Substance: BUDESONIDE
     Indication: BRONCHIAL DISORDER
     Dosage: 400 UG, QD
     Route: 065
     Dates: end: 20160131
  4. SALBUTAMOL [Concomitant]
     Active Substance: ALBUTEROL
     Indication: PRODUCT USED FOR UNKNOWN INDICATION
     Dosage: 1 DF, QD
     Route: 065
  5. BETAMETHASONE. [Concomitant]
     Active Substance: BETAMETHASONE
     Indication: PRODUCT USED FOR UNKNOWN INDICATION
     Dosage: UNK
     Route: 065
  6. MIFLONIDE [Suspect]
     Active Substance: BUDESONIDE
     Dosage: 400 UG, UNK
     Route: 065
  7. COMBIVENT [Concomitant]
     Active Substance: ALBUTEROL SULFATE\IPRATROPIUM BROMIDE
     Indication: PRODUCT USED FOR UNKNOWN INDICATION
     Dosage: UNK
     Route: 065
  8. ALBUTEROL//SALBUTAMOL [Concomitant]
     Indication: PRODUCT USED FOR UNKNOWN INDICATION
     Dosage: UNK
     Route: 065

REACTIONS (14)
  - Dyspnoea [Unknown]
  - Bronchial obstruction [Unknown]
  - Cough [Not Recovered/Not Resolved]
  - Stress [Unknown]
  - Malaise [Unknown]
  - Headache [Unknown]
  - Agitation [Unknown]
  - Decreased immune responsiveness [Unknown]
  - Product use issue [Unknown]
  - Poor quality sleep [Unknown]
  - Influenza [Unknown]
  - Pharyngitis [Unknown]
  - Productive cough [Not Recovered/Not Resolved]
  - Fatigue [Unknown]
